FAERS Safety Report 4515559-3 (Version None)
Quarter: 2004Q4

REPORT INFORMATION
  Report Type: 
  Country: None (occurrence: None)
  Receive Date: 20041126
  Receipt Date: 20041115
  Transmission Date: 20050328
  Serious: Yes (Disabling, Other)
  Sender: FDA-Public Use
  Company Number: 2004093129

PATIENT
  Sex: Female

DRUGS (5)
  1. LIPITOR [Suspect]
     Indication: BLOOD CHOLESTEROL INCREASED
     Dosage: 10 MG (10 MG, 1 IN 1 D), ORAL
     Route: 048
  2. CELEBREX [Suspect]
     Indication: ARTHRITIS
     Dosage: ORAL
     Route: 048
  3. LEVOTHYROXINE SODIUM [Concomitant]
  4. TIZANIDINE (TIZANIDINE) [Concomitant]
  5. BENAZEPRIL HCL [Concomitant]

REACTIONS (19)
  - ARTHRITIS [None]
  - BACK PAIN [None]
  - BLOOD CHOLESTEROL INCREASED [None]
  - BODY HEIGHT DECREASED [None]
  - CHOLECYSTECTOMY [None]
  - DEHYDRATION [None]
  - DRUG INEFFECTIVE [None]
  - FEELING COLD [None]
  - GASTROOESOPHAGEAL REFLUX DISEASE [None]
  - HEPATIC CIRRHOSIS [None]
  - INADEQUATE ANALGESIA [None]
  - LIVER DISORDER [None]
  - NAUSEA [None]
  - PLATELET COUNT DECREASED [None]
  - PNEUMONIA [None]
  - PRURITUS [None]
  - SURGERY [None]
  - TREMOR [None]
  - VOMITING [None]
